FAERS Safety Report 8858923 (Version 1)
Quarter: 2012Q4

REPORT INFORMATION
  Report Type: 
  Country: US (occurrence: US)
  Receive Date: 20121024
  Receipt Date: 20121024
  Transmission Date: 20130627
  Serious: No
  Sender: FDA-Public Use
  Company Number: US-BAYER-2012-107776

PATIENT
  Sex: Female

DRUGS (2)
  1. BEYAZ [Suspect]
     Indication: MENSTRUAL CYCLE MANAGEMENT
     Dosage: UNK
     Dates: start: 201011
  2. SPRINTEC [Concomitant]

REACTIONS (4)
  - Breast tenderness [None]
  - Nausea [None]
  - Emotional disorder [None]
  - Crying [None]
